FAERS Safety Report 5955109-8 (Version None)
Quarter: 2008Q4

REPORT INFORMATION
  Report Type: 
  Country: None (occurrence: None)
  Receive Date: 20081113
  Receipt Date: 20081113
  Transmission Date: 20090506
  Serious: No
  Sender: FDA-Public Use
  Company Number: None

PATIENT
  Age: 22 Month
  Sex: Female
  Weight: 9.5255 kg

DRUGS (1)
  1. CEPHALEXIN [Suspect]
     Indication: NAIL INFECTION
     Dosage: 3 + 1/2 ML ORALLY 3 TIMES A DAY
     Route: 048
     Dates: start: 20081107, end: 20081111

REACTIONS (14)
  - ABDOMINAL DISCOMFORT [None]
  - ABNORMAL BEHAVIOUR [None]
  - AGGRESSION [None]
  - AGITATION [None]
  - CONFUSIONAL STATE [None]
  - CONVERSION DISORDER [None]
  - CRYING [None]
  - DIARRHOEA [None]
  - HAEMORRHAGE [None]
  - MENTAL DISORDER [None]
  - MOOD ALTERED [None]
  - PAIN [None]
  - SCRATCH [None]
  - SELF INJURIOUS BEHAVIOUR [None]
